FAERS Safety Report 10175265 (Version 1)
Quarter: 2014Q2

REPORT INFORMATION
  Report Type: Spontaneous
  Country: SE (occurrence: SE)
  Receive Date: 20140515
  Receipt Date: 20140515
  Transmission Date: 20141212
  Serious: Yes (Other)
  Sender: FDA-Public Use
  Company Number: SE-ABBVIE-14P-150-1237005-00

PATIENT
  Age: 63 Year
  Sex: Female

DRUGS (16)
  1. ERGENYL RETARD [Suspect]
     Indication: EPILEPSY
     Route: 065
     Dates: start: 20110513
  2. DENTAN [Concomitant]
     Indication: PRODUCT USED FOR UNKNOWN INDICATION
  3. SELOKENZOC [Concomitant]
     Indication: PRODUCT USED FOR UNKNOWN INDICATION
  4. PEVISON [Concomitant]
     Indication: PRODUCT USED FOR UNKNOWN INDICATION
  5. AERIUS [Concomitant]
     Indication: PRODUCT USED FOR UNKNOWN INDICATION
  6. GABAPENTIN [Concomitant]
     Indication: PRODUCT USED FOR UNKNOWN INDICATION
  7. FUCITHALMIC [Concomitant]
     Indication: PRODUCT USED FOR UNKNOWN INDICATION
  8. LAXOBERAL [Concomitant]
     Indication: PRODUCT USED FOR UNKNOWN INDICATION
  9. XYLOPROCT [Concomitant]
     Indication: PRODUCT USED FOR UNKNOWN INDICATION
     Dosage: ALUMINIUM DIACETATE/HYDROCORTISONE ACETATE/LIDOCAINE/ZINC OXIDE
  10. LOCOID [Concomitant]
     Indication: PRODUCT USED FOR UNKNOWN INDICATION
  11. BETNOVAT [Concomitant]
     Indication: PRODUCT USED FOR UNKNOWN INDICATION
  12. PANODIL [Concomitant]
     Indication: PRODUCT USED FOR UNKNOWN INDICATION
  13. STESOLID [Concomitant]
     Indication: PRODUCT USED FOR UNKNOWN INDICATION
  14. NASONEX [Concomitant]
     Indication: PRODUCT USED FOR UNKNOWN INDICATION
  15. MOVICOL [Concomitant]
     Indication: PRODUCT USED FOR UNKNOWN INDICATION
     Dosage: MACROGOL/POTASSIUM CHLORIDE/SODIUM BICARBONATE/SODIUM CHLORIDE
  16. FLUDENT [Concomitant]
     Indication: PRODUCT USED FOR UNKNOWN INDICATION

REACTIONS (1)
  - Myoclonus [Not Recovered/Not Resolved]
